FAERS Safety Report 6897619-5 (Version None)
Quarter: 2010Q3

REPORT INFORMATION
  Report Type: 
  Country: None (occurrence: None)
  Receive Date: 20100802
  Receipt Date: 20070629
  Transmission Date: 20110219
  Serious: No
  Sender: FDA-Public Use
  Company Number: US-PFIZER INC-2007054183

PATIENT
  Sex: Female
  Weight: 50 kg

DRUGS (3)
  1. LYRICA [Suspect]
     Indication: NEURALGIA
     Dates: start: 20070609
  2. SKELAXIN [Concomitant]
  3. ANTIDEPRESSANTS [Concomitant]

REACTIONS (2)
  - CONTUSION [None]
  - PAIN IN EXTREMITY [None]
